FAERS Safety Report 8166385-8 (Version None)
Quarter: 2012Q1

REPORT INFORMATION
  Report Type: 
  Country: None (occurrence: None)
  Receive Date: 20120227
  Receipt Date: 20110815
  Transmission Date: 20120608
  Serious: No
  Sender: FDA-Public Use
  Company Number: US-MYLANLABS-2011S1013968

PATIENT
  Age: 32 Year
  Sex: Female
  Weight: 56.7 kg

DRUGS (4)
  1. SEROQUEL [Concomitant]
     Dosage: PRIOR TO AMNESTEEM THERAPY
  2. AMNESTEEM [Suspect]
     Route: 048
     Dates: end: 20110628
  3. AMNESTEEM [Suspect]
     Indication: ACNE
     Route: 048
     Dates: start: 20110324
  4. ATIVAN [Concomitant]
     Dosage: PRIOR TO AMNESTEEM THERAPY

REACTIONS (1)
  - ANXIETY [None]
